FAERS Safety Report 10725178 (Version 2)
Quarter: 2015Q1

REPORT INFORMATION
  Report Type: Report from Study
  Country: US (occurrence: US)
  Receive Date: 20150120
  Receipt Date: 20150129
  Transmission Date: 20150721
  Serious: Yes (Death, Other)
  Sender: FDA-Public Use
  Company Number: US-GILEAD-2015-0132998

PATIENT
  Age: 24 Year
  Sex: Male

DRUGS (2)
  1. IDELALISIB [Suspect]
     Active Substance: IDELALISIB
     Indication: POST TRANSPLANT LYMPHOPROLIFERATIVE DISORDER
  2. IDELALISIB [Suspect]
     Active Substance: IDELALISIB
     Indication: LYMPHOMA
     Dosage: 150 MG, UNK
     Route: 048
     Dates: start: 20141110, end: 20141220

REACTIONS (2)
  - Disease progression [Fatal]
  - Adenovirus infection [Fatal]
